FAERS Safety Report 19759876 (Version 2)
Quarter: 2022Q2

REPORT INFORMATION
  Report Type: Spontaneous
  Country: US (occurrence: US)
  Receive Date: 20210830
  Receipt Date: 20220518
  Transmission Date: 20220720
  Serious: No
  Sender: FDA-Public Use
  Company Number: US-NOVARTISTESTPH-NVSC2021US194814

PATIENT
  Sex: Female

DRUGS (6)
  1. TAFINLAR [Suspect]
     Active Substance: DABRAFENIB MESYLATE
     Indication: Pain
     Dosage: 150 MG, BID
     Route: 048
     Dates: start: 20201121
  2. TAFINLAR [Suspect]
     Active Substance: DABRAFENIB MESYLATE
     Indication: Liver function test abnormal
  3. TAFINLAR [Suspect]
     Active Substance: DABRAFENIB MESYLATE
     Indication: Neoplasm
  4. MEKINIST [Suspect]
     Active Substance: TRAMETINIB DIMETHYL SULFOXIDE
     Indication: Pain
     Dosage: 2 MG, QD
     Route: 048
     Dates: start: 20201125
  5. MEKINIST [Suspect]
     Active Substance: TRAMETINIB DIMETHYL SULFOXIDE
     Indication: Liver function test abnormal
  6. MEKINIST [Suspect]
     Active Substance: TRAMETINIB DIMETHYL SULFOXIDE
     Indication: Neoplasm

REACTIONS (3)
  - Chills [Unknown]
  - Dyschromatopsia [Unknown]
  - Product use in unapproved indication [Unknown]
